FAERS Safety Report 10090696 (Version 1)
Quarter: 2014Q2

REPORT INFORMATION
  Report Type: Report from Study
  Country: US (occurrence: US)
  Receive Date: 20140421
  Receipt Date: 20140421
  Transmission Date: 20141212
  Serious: Yes (Other)
  Sender: FDA-Public Use
  Company Number: US-GILEAD-2014-0099886

PATIENT
  Age: 50 Year
  Sex: Female

DRUGS (1)
  1. SOFOSBUVIR [Suspect]
     Indication: CHRONIC HEPATITIS C
     Dosage: 400 MG, UNK
     Route: 065
     Dates: start: 20140314

REACTIONS (4)
  - Lung infection [Unknown]
  - Paraesthesia [Unknown]
  - Muscle spasms [Unknown]
  - Diarrhoea [Unknown]
